FAERS Safety Report 5750254-4 (Version None)
Quarter: 2008Q2

REPORT INFORMATION
  Report Type: 
  Country: None (occurrence: None)
  Receive Date: 20080527
  Receipt Date: 20080519
  Transmission Date: 20081010
  Serious: Yes (Hospitalization)
  Sender: FDA-Public Use
  Company Number: DE-PFIZER INC-2008043962

PATIENT
  Sex: Female
  Weight: 60 kg

DRUGS (7)
  1. SU-011,248 [Suspect]
     Indication: BREAST CANCER
     Route: 048
     Dates: start: 20080229, end: 20080504
  2. AMITRIPTYLINE HCL [Concomitant]
     Route: 048
  3. PANTOPRAZOLE SODIUM [Concomitant]
     Route: 048
  4. DIOVAN HCT [Concomitant]
     Route: 048
  5. SIMVASTATIN [Concomitant]
     Route: 048
  6. MST [Concomitant]
     Route: 048
  7. NOVALDIN INJ [Concomitant]
     Route: 048

REACTIONS (1)
  - THROMBOCYTOPENIA [None]
